FAERS Safety Report 8849384 (Version 1)
Quarter: 2012Q4

REPORT INFORMATION
  Report Type: Spontaneous
  Country: US (occurrence: None)
  Receive Date: 20121017
  Receipt Date: 20121017
  Transmission Date: 20130627
  Serious: Yes (Death, Other)
  Sender: FDA-Public Use
  Company Number: CPI 3906

PATIENT
  Age: 11 Day
  Sex: Male
  Weight: 43.9 kg

DRUGS (1)
  1. IBUPROFEN LYSINE [Suspect]
     Indication: PATENT DUCTUS ARTERIOSUS
     Route: 042

REACTIONS (9)
  - Hypotension [None]
  - Pulmonary hypertension [None]
  - Metabolic acidosis [None]
  - Anuria [None]
  - Right ventricular systolic pressure [None]
  - Dilatation ventricular [None]
  - Tricuspid valve incompetence [None]
  - Hypoxia [None]
  - Ventricular hypokinesia [None]
